FAERS Safety Report 5024261-3 (Version None)
Quarter: 2006Q2

REPORT INFORMATION
  Report Type: 
  Country: None (occurrence: None)
  Receive Date: 20060613
  Receipt Date: 20060126
  Transmission Date: 20061013
  Serious: Yes (Hospitalization)
  Sender: FDA-Public Use
  Company Number: PHRM2006FR00621

PATIENT
  Age: 57 Year
  Sex: Female

DRUGS (8)
  1. LAMALINE [Suspect]
     Dosage: 1 DF, TID
     Route: 048
     Dates: start: 20050801
  2. ATHYMIL [Suspect]
     Dosage: 10 MG, QD
     Route: 048
  3. VASTAREL [Suspect]
     Dosage: 35 MG, BID
     Route: 048
  4. BETAHISTINE [Suspect]
     Dosage: 16 MG, BID
     Route: 048
  5. BUSPAR [Suspect]
     Dosage: 1 DF, BID
     Route: 048
  6. SANMIGRAN [Suspect]
     Route: 048
  7. RADIOTHERAPY [Suspect]
     Indication: BREAST CANCER
     Dates: end: 20051020
  8. FEMARA [Suspect]
     Indication: BREAST CANCER
     Dosage: 2.5 MG, QD
     Route: 048
     Dates: start: 20050801

REACTIONS (2)
  - DERMATITIS BULLOUS [None]
  - PEMPHIGUS [None]
